FAERS Safety Report 17978679 (Version 1)
Quarter: 2020Q3

REPORT INFORMATION
  Report Type: Spontaneous
  Country: ES (occurrence: ES)
  Receive Date: 20200703
  Receipt Date: 20200703
  Transmission Date: 20201103
  Serious: Yes (Hospitalization)
  Sender: FDA-Public Use
  Company Number: NVSC2020ES180387

PATIENT
  Sex: Female
  Weight: 63.6 kg

DRUGS (17)
  1. TRAMADOL HYDROCHLORIDE. [Suspect]
     Active Substance: TRAMADOL HYDROCHLORIDE
     Dosage: UNK
     Route: 065
     Dates: start: 201912
  2. METAMIZOLE [Suspect]
     Active Substance: METAMIZOLE
     Indication: ABDOMINAL PAIN UPPER
     Dosage: UNK
     Route: 030
  3. DOXAZOSIN MESILATE [Suspect]
     Active Substance: DOXAZOSIN MESYLATE
     Indication: HYPERTENSION
     Dosage: UNK
     Route: 065
     Dates: start: 20180706
  4. PARACETAMOL [Suspect]
     Active Substance: ACETAMINOPHEN
     Indication: PYREXIA
     Dosage: 3 G, QD (1 GRAM, Q8H)
     Route: 065
     Dates: start: 201912
  5. PARACETAMOL [Suspect]
     Active Substance: ACETAMINOPHEN
     Indication: ABDOMINAL PAIN UPPER
     Dosage: 1 G, Q8H
     Route: 065
     Dates: start: 20200128
  6. ANTIHISTAMINICO [Suspect]
     Active Substance: CHLORPHENIRAMINE MALEATE
     Indication: PRODUCT USED FOR UNKNOWN INDICATION
     Dosage: UNK
     Route: 065
     Dates: start: 20200128
  7. JINARC [Suspect]
     Active Substance: TOLVAPTAN
     Indication: CONGENITAL CYSTIC KIDNEY DISEASE
     Dosage: 120 MG, QD
     Route: 065
     Dates: start: 201903, end: 20200115
  8. PARACETAMOL [Suspect]
     Active Substance: ACETAMINOPHEN
     Indication: INFLUENZA
  9. OLMESARTAN MEDOXOMIL. [Suspect]
     Active Substance: OLMESARTAN MEDOXOMIL
     Indication: PRODUCT USED FOR UNKNOWN INDICATION
     Dosage: UNK
     Route: 065
     Dates: start: 20190114
  10. ESOMEPRAZOLE. [Suspect]
     Active Substance: ESOMEPRAZOLE MAGNESIUM
     Indication: OESOPHAGITIS
     Dosage: UNK SPORADICALLY TAKEN
     Route: 065
     Dates: start: 20191216
  11. ASCORBIC ACID. [Suspect]
     Active Substance: ASCORBIC ACID
     Indication: PRODUCT USED FOR UNKNOWN INDICATION
     Dosage: UNK FOR 1 DAY
     Route: 065
     Dates: start: 20200128
  12. LOPERAMIDE [Suspect]
     Active Substance: LOPERAMIDE
     Indication: DIARRHOEA
     Dosage: UNK
     Route: 065
     Dates: start: 20200128
  13. ROBAXIN [Suspect]
     Active Substance: METHOCARBAMOL
     Indication: MUSCLE SPASMS
     Dosage: UNK ON CERTAIN OCCASIONS
     Route: 065
     Dates: start: 20191122
  14. TRAMADOL HYDROCHLORIDE. [Suspect]
     Active Substance: TRAMADOL HYDROCHLORIDE
     Indication: INFLUENZA
     Dosage: UNK
     Route: 065
  15. METAMIZOLE [Suspect]
     Active Substance: METAMIZOLE
     Indication: PYREXIA
  16. RIZATRIPTAN BENZOATE. [Suspect]
     Active Substance: RIZATRIPTAN BENZOATE
     Indication: PRODUCT USED FOR UNKNOWN INDICATION
     Dosage: UNK
     Route: 065
     Dates: start: 20180706
  17. EBASTINE [Suspect]
     Active Substance: EBASTINE
     Indication: INFLUENZA
     Dosage: UNK
     Route: 065
     Dates: start: 20200210

REACTIONS (13)
  - Muscle spasms [Recovered/Resolved]
  - Oesophagitis [Recovered/Resolved]
  - Aspartate aminotransferase increased [Recovered/Resolved]
  - Influenza [Recovered/Resolved]
  - Gallbladder polyp [Unknown]
  - Diarrhoea [Recovered/Resolved]
  - Vomiting [Recovered/Resolved]
  - Abdominal pain upper [Recovered/Resolved]
  - Cough [Recovered/Resolved]
  - Liver disorder [Recovered/Resolved]
  - Pyrexia [Recovered/Resolved]
  - Rhinorrhoea [Recovered/Resolved]
  - Alanine aminotransferase increased [Recovered/Resolved]

NARRATIVE: CASE EVENT DATE: 20191122
